FAERS Safety Report 4356559-6 (Version None)
Quarter: 2004Q2

REPORT INFORMATION
  Report Type: 
  Country: None (occurrence: None)
  Receive Date: 20040506
  Receipt Date: 20040428
  Transmission Date: 20050107
  Serious: Yes (Death, Hospitalization, Other)
  Sender: FDA-Public Use
  Company Number: 2004-04-1658

PATIENT
  Sex: Female

DRUGS (2)
  1. TEMODAL [Suspect]
     Indication: METASTATIC MALIGNANT MELANOMA
     Dosage: 320 MG QD ORAL
     Route: 048
     Dates: start: 20040310, end: 20040314
  2. CISPLATIN [Suspect]
     Indication: METASTATIC MALIGNANT MELANOMA
     Dosage: 120 MG INTRAVENOUS
     Route: 042
     Dates: start: 20040310, end: 20040310

REACTIONS (4)
  - CIRCULATORY COLLAPSE [None]
  - COMA [None]
  - DYSPNOEA [None]
  - PANCYTOPENIA [None]
